FAERS Safety Report 19814613 (Version 2)
Quarter: 2021Q4

REPORT INFORMATION
  Report Type: Spontaneous
  Country: JP (occurrence: JP)
  Receive Date: 20210910
  Receipt Date: 20211001
  Transmission Date: 20220303
  Serious: No
  Sender: FDA-Public Use
  Company Number: JP-PFIZER INC-202101139470

PATIENT
  Age: 80 Year
  Sex: Female

DRUGS (1)
  1. LORBRENA [Suspect]
     Active Substance: LORLATINIB
     Indication: Non-small cell lung cancer
     Dosage: 100 MG, DAILY
     Dates: start: 20201018, end: 20210106

REACTIONS (1)
  - Neoplasm progression [Unknown]
